FAERS Safety Report 5480218-X (Version None)
Quarter: 2007Q4

REPORT INFORMATION
  Report Type: 
  Country: None (occurrence: None)
  Receive Date: 20071009
  Receipt Date: 20070926
  Transmission Date: 20080405
  Serious: Yes (Life-Threatening, Hospitalization)
  Sender: FDA-Public Use
  Company Number: NL-AMGEN-UK240667

PATIENT
  Sex: Male

DRUGS (2)
  1. NEULASTA [Suspect]
     Indication: CHEMOTHERAPY
     Route: 058
  2. AVELOX [Concomitant]
     Route: 065

REACTIONS (1)
  - CEREBROVASCULAR ACCIDENT [None]
